FAERS Safety Report 24161756 (Version 1)
Quarter: 2024Q3

REPORT INFORMATION
  Report Type: Spontaneous
  Country: US (occurrence: US)
  Receive Date: 20240801
  Receipt Date: 20240801
  Transmission Date: 20241016
  Serious: No
  Sender: BRISTOL MYERS SQUIBB
  Company Number: US-BRISTOL-MYERS SQUIBB COMPANY-2024-120243

PATIENT
  Age: 74 Year
  Sex: Male
  Weight: 80.74 kg

DRUGS (1)
  1. OPDIVO [Suspect]
     Active Substance: NIVOLUMAB
     Indication: Bladder cancer
     Route: 042
     Dates: start: 20221006

REACTIONS (7)
  - Insurance issue [Unknown]
  - Therapy interrupted [Unknown]
  - Flushing [Unknown]
  - Feeling abnormal [Unknown]
  - Chest discomfort [Unknown]
  - Abdominal discomfort [Unknown]
  - Drug hypersensitivity [Unknown]

NARRATIVE: CASE EVENT DATE: 20221103
